FAERS Safety Report 26112052 (Version 1)
Quarter: 2025Q4

REPORT INFORMATION
  Report Type: Spontaneous
  Country: US (occurrence: US)
  Receive Date: 20251202
  Receipt Date: 20251202
  Transmission Date: 20260117
  Serious: No
  Sender: Otter
  Company Number: US-OTTER-US-2025AST000311

PATIENT
  Age: 58 Year
  Sex: Female

DRUGS (2)
  1. OTREXUP [Suspect]
     Active Substance: METHOTREXATE
     Indication: Sjogren^s syndrome
     Dosage: 22.5 MILLIGRAM, WEEKLY
     Route: 058
     Dates: start: 202110
  2. OTREXUP [Suspect]
     Active Substance: METHOTREXATE
     Indication: Rheumatoid arthritis

REACTIONS (2)
  - Device malfunction [Unknown]
  - Off label use [Unknown]
